FAERS Safety Report 7686653-3 (Version None)
Quarter: 2011Q3

REPORT INFORMATION
  Report Type: 
  Country: None (occurrence: None)
  Receive Date: 20110816
  Receipt Date: 20110816
  Transmission Date: 20111222
  Serious: No
  Sender: FDA-Public Use
  Company Number: None

PATIENT
  Age: 73 Year
  Sex: Female
  Weight: 76.657 kg

DRUGS (1)
  1. DIPHENHYDRAMINE (OTC) [Suspect]
     Indication: SEASONAL ALLERGY
     Dosage: 1 CAPSULE 25 MG.
     Dates: start: 20110815, end: 20110815

REACTIONS (11)
  - NAUSEA [None]
  - HYPERTENSION [None]
  - MALAISE [None]
  - CHILLS [None]
  - HYPOREFLEXIA [None]
  - ABDOMINAL PAIN UPPER [None]
  - TINNITUS [None]
  - DRY MOUTH [None]
  - PYREXIA [None]
  - SPEECH DISORDER [None]
  - HEADACHE [None]
